FAERS Safety Report 4647389-6 (Version None)
Quarter: 2005Q2

REPORT INFORMATION
  Report Type: 
  Country: None (occurrence: None)
  Receive Date: 20050427
  Receipt Date: 20050427
  Transmission Date: 20051028
  Serious: Yes (Other)
  Sender: FDA-Public Use
  Company Number: None

PATIENT
  Age: 51 Year
  Sex: Female
  Weight: 77.1115 kg

DRUGS (2)
  1. FEMARA [Suspect]
     Indication: BREAST CANCER
     Dosage: DAILY
     Dates: start: 20030901, end: 20040901
  2. FEMARA [Suspect]
     Indication: POSTMENOPAUSE
     Dosage: DAILY
     Dates: start: 20030901, end: 20040901

REACTIONS (3)
  - DYSSTASIA [None]
  - JOINT STIFFNESS [None]
  - MYALGIA [None]
